FAERS Safety Report 16566042 (Version 1)
Quarter: 2019Q3

REPORT INFORMATION
  Report Type: Spontaneous
  Country: IT (occurrence: IT)
  Receive Date: 20190712
  Receipt Date: 20190712
  Transmission Date: 20191004
  Serious: Yes (Hospitalization)
  Sender: FDA-Public Use
  Company Number: IT-PFIZER INC-2019295113

PATIENT
  Age: 45 Year
  Sex: Female
  Weight: 120 kg

DRUGS (1)
  1. TRIATEC (RAMIPRIL) [Suspect]
     Active Substance: RAMIPRIL
     Indication: PRODUCT ADMINISTRATION ERROR
     Dosage: 40 MG, TOTAL
     Route: 048
     Dates: start: 20190621, end: 20190621

REACTIONS (3)
  - Tachyarrhythmia [Recovering/Resolving]
  - Hypotension [Recovering/Resolving]
  - Product administration error [Recovering/Resolving]

NARRATIVE: CASE EVENT DATE: 20190621
